FAERS Safety Report 13374939 (Version 3)
Quarter: 2017Q3

REPORT INFORMATION
  Report Type: Report from Study
  Country: DE (occurrence: DE)
  Receive Date: 20170327
  Receipt Date: 20170920
  Transmission Date: 20171127
  Serious: No
  Sender: FDA-Public Use
  Company Number: DE-JNJFOC-20170323815

PATIENT
  Age: 45 Year
  Sex: Male
  Weight: 105 kg

DRUGS (13)
  1. METHOTREXATE. [Suspect]
     Active Substance: METHOTREXATE
     Indication: PSORIATIC ARTHROPATHY
     Route: 065
     Dates: start: 20161124
  2. INDOMETHACIN. [Concomitant]
     Active Substance: INDOMETHACIN
     Indication: PSORIATIC ARTHROPATHY
     Route: 065
     Dates: start: 200011
  3. METHOTREXATE. [Suspect]
     Active Substance: METHOTREXATE
     Indication: PSORIATIC ARTHROPATHY
     Route: 065
     Dates: start: 201402, end: 20161017
  4. LISINOPRIL. [Concomitant]
     Active Substance: LISINOPRIL
     Indication: HYPERTENSION
     Route: 065
     Dates: start: 200803
  5. INDAPAMIDE HEMIHYDRATE [Concomitant]
     Active Substance: INDAPAMIDE HEMIHYDRATE
     Indication: HYPERTENSION
     Route: 065
     Dates: start: 200203
  6. CICLOSPORIN [Concomitant]
     Active Substance: CYCLOSPORINE
     Indication: PSORIATIC ARTHROPATHY
     Route: 065
     Dates: start: 20160128, end: 20170329
  7. FELODIPIN [Concomitant]
     Active Substance: FELODIPINE
     Indication: HYPERTENSION
     Route: 065
     Dates: start: 200112
  8. STELARA [Suspect]
     Active Substance: USTEKINUMAB
     Indication: PSORIASIS
     Route: 058
     Dates: start: 20151014
  9. HYDROCHLOROTHIAZIDE. [Concomitant]
     Active Substance: HYDROCHLOROTHIAZIDE
     Indication: HYPERTENSION
     Route: 065
     Dates: start: 200808
  10. METFORMIN [Concomitant]
     Active Substance: METFORMIN HYDROCHLORIDE
     Indication: DIABETES MELLITUS
     Route: 065
     Dates: start: 201306
  11. STELARA [Suspect]
     Active Substance: USTEKINUMAB
     Indication: PSORIATIC ARTHROPATHY
     Route: 058
     Dates: start: 20151014
  12. CICLOSPORIN [Concomitant]
     Active Substance: CYCLOSPORINE
     Indication: PSORIATIC ARTHROPATHY
     Route: 065
     Dates: start: 201307, end: 20160427
  13. FOLIC ACID. [Concomitant]
     Active Substance: FOLIC ACID
     Indication: PSORIATIC ARTHROPATHY
     Route: 065
     Dates: start: 200008

REACTIONS (2)
  - Hepatic enzyme increased [Recovered/Resolved]
  - Nasopharyngitis [Recovered/Resolved]

NARRATIVE: CASE EVENT DATE: 20161014
